FAERS Safety Report 5232850-6 (Version None)
Quarter: 2007Q1

REPORT INFORMATION
  Report Type: 
  Country: None (occurrence: None)
  Receive Date: 20070207
  Receipt Date: 20070129
  Transmission Date: 20070707
  Serious: Yes (Death)
  Sender: FDA-Public Use
  Company Number: GB-JNJFOC-20070107588

PATIENT
  Age: 45 Year
  Sex: Female
  Weight: 100 kg

DRUGS (3)
  1. RISPERDAL CONSTA [Suspect]
     Indication: PSYCHOTIC DISORDER
     Route: 030
  2. RISPERDAL [Concomitant]
     Indication: PSYCHOTIC DISORDER
     Route: 048
  3. CLOPIXOL [Concomitant]
     Indication: PSYCHOTIC DISORDER
     Route: 030

REACTIONS (2)
  - CHEST PAIN [None]
  - MYOCARDITIS [None]
